FAERS Safety Report 23384131 (Version 1)
Quarter: 2024Q1

REPORT INFORMATION
  Report Type: Spontaneous
  Country: US (occurrence: None)
  Receive Date: 20240109
  Receipt Date: 20240109
  Transmission Date: 20240410
  Serious: Yes (Hospitalization)
  Sender: FDA-Public Use
  Company Number: None

PATIENT
  Age: 43 Year
  Sex: Female

DRUGS (1)
  1. BELATACEPT [Suspect]
     Active Substance: BELATACEPT
     Indication: Renal transplant

REACTIONS (7)
  - Renal transplant [None]
  - Renal impairment [None]
  - Blood creatinine increased [None]
  - Pollakiuria [None]
  - Acute kidney injury [None]
  - Arteriosclerosis [None]
  - Polyomavirus-associated nephropathy [None]

NARRATIVE: CASE EVENT DATE: 20231208
